FAERS Safety Report 7369595-2 (Version None)
Quarter: 2011Q1

REPORT INFORMATION
  Report Type: 
  Country: None (occurrence: None)
  Receive Date: 20110314
  Receipt Date: 20110301
  Transmission Date: 20110831
  Serious: Yes (Death, Hospitalization)
  Sender: FDA-Public Use
  Company Number: UTC-005467

PATIENT
  Age: 75 Year
  Sex: Male
  Weight: 45.4 kg

DRUGS (3)
  1. ADCIRCA [Concomitant]
  2. DIURETICS (DIURETICS) [Concomitant]
  3. REMODULIN [Suspect]
     Indication: PULMONARY ARTERIAL HYPERTENSION
     Dosage: 28.8 UG/KG (0.02 UG/KG, 1IN 1 MIN),INTRAVENOUS
     Route: 042
     Dates: start: 20101119

REACTIONS (1)
  - DYSPNOEA [None]
